FAERS Safety Report 24952075 (Version 1)
Quarter: 2025Q1

REPORT INFORMATION
  Report Type: Spontaneous
  Country: US (occurrence: None)
  Receive Date: 20250209
  Receipt Date: 20250209
  Transmission Date: 20250408
  Serious: Yes (unspecified)
  Sender: FDA-CTU
  Company Number: None

PATIENT
  Age: 51 Year
  Sex: Female
  Weight: 107.1 kg

DRUGS (10)
  1. OZEMPIC [Suspect]
     Active Substance: SEMAGLUTIDE
     Indication: Weight control
     Route: 050
     Dates: start: 20241111, end: 20250201
  2. GABAPENTIN [Concomitant]
     Active Substance: GABAPENTIN
  3. IBUPROFEN [Concomitant]
     Active Substance: IBUPROFEN
  4. ALBUTEROL [Concomitant]
     Active Substance: ALBUTEROL
  5. GLIMEPIRIDE [Concomitant]
     Active Substance: GLIMEPIRIDE
  6. NP THYROID [Concomitant]
     Active Substance: LEVOTHYROXINE\LIOTHYRONINE
  7. VITAMIN D2 [Concomitant]
     Active Substance: ERGOCALCIFEROL
  8. OMEGA 3 [Concomitant]
     Active Substance: CAPSAICIN
  9. LORATADINE [Concomitant]
     Active Substance: LORATADINE
  10. MONTELUKAST [Concomitant]
     Active Substance: MONTELUKAST

REACTIONS (14)
  - Asthenia [None]
  - Fatigue [None]
  - Dizziness [None]
  - Nausea [None]
  - Epigastric discomfort [None]
  - Constipation [None]
  - Electric shock sensation [None]
  - Pain in extremity [None]
  - Gait inability [None]
  - Lip disorder [None]
  - Dysgeusia [None]
  - Drug monitoring procedure not performed [None]
  - Therapy cessation [None]
  - X-ray gastrointestinal tract abnormal [None]

NARRATIVE: CASE EVENT DATE: 20250203
